FAERS Safety Report 17771738 (Version 1)
Quarter: 2020Q2

REPORT INFORMATION
  Report Type: Report from Study
  Country: US (occurrence: US)
  Receive Date: 20200512
  Receipt Date: 20200512
  Transmission Date: 20200714
  Serious: Yes (Death)
  Sender: FDA-Public Use
  Company Number: US-BEIGENE AUS PTY LTD-BGN-2020-000761

PATIENT

DRUGS (1)
  1. BRUKINSA [Suspect]
     Active Substance: ZANUBRUTINIB
     Indication: B-CELL LYMPHOMA
     Dosage: 80 MILLIGRAM, BID
     Route: 048
     Dates: start: 20200128

REACTIONS (1)
  - Death [Fatal]

NARRATIVE: CASE EVENT DATE: 20200502
